FAERS Safety Report 22616676 (Version 1)
Quarter: 2023Q2

REPORT INFORMATION
  Report Type: Spontaneous
  Country: US (occurrence: US)
  Receive Date: 20230619
  Receipt Date: 20230619
  Transmission Date: 20230721
  Serious: Yes (Death, Other)
  Sender: FDA-Public Use
  Company Number: US-AMGEN-USASP2023102054

PATIENT

DRUGS (2)
  1. BEVACIZUMAB [Suspect]
     Active Substance: BEVACIZUMAB
     Indication: Glioblastoma
     Dosage: UNK
     Route: 065
  2. VAL 083 [Concomitant]
     Indication: Glioblastoma
     Dosage: 30 MILLIGRAM PER SQUARE METRE, Q3WK FOR 3 CONSECUTIVE DAYS

REACTIONS (4)
  - Death [Fatal]
  - Glioblastoma [Unknown]
  - Neutropenia [Unknown]
  - Thrombocytopenia [Unknown]
